FAERS Safety Report 15353707 (Version 1)
Quarter: 2018Q3

REPORT INFORMATION
  Report Type: Spontaneous
  Country: US (occurrence: US)
  Receive Date: 20180905
  Receipt Date: 20180905
  Transmission Date: 20181010
  Serious: Yes (Hospitalization)
  Sender: FDA-Public Use
  Company Number: US-DSJP-DSU-2017-145320

PATIENT

DRUGS (1)
  1. BENICAR HCT [Suspect]
     Active Substance: HYDROCHLOROTHIAZIDE\OLMESARTAN MEDOXOMIL
     Indication: PRODUCT USED FOR UNKNOWN INDICATION
     Dosage: 40/12.5MG, QD
     Route: 048
     Dates: start: 20060728, end: 20140113

REACTIONS (8)
  - Rectal polyp [Recovered/Resolved]
  - Oesophageal stenosis [Recovering/Resolving]
  - Barrett^s oesophagus [Unknown]
  - Gastrooesophageal reflux disease [Not Recovered/Not Resolved]
  - Sprue-like enteropathy [Recovering/Resolving]
  - Dizziness [Unknown]
  - Diverticulum [Unknown]
  - Occult blood [Unknown]

NARRATIVE: CASE EVENT DATE: 20060816
